FAERS Safety Report 6209057-9 (Version None)
Quarter: 2009Q2

REPORT INFORMATION
  Report Type: 
  Country: None (occurrence: None)
  Receive Date: 20090529
  Receipt Date: 20090522
  Transmission Date: 20091009
  Serious: Yes (Other)
  Sender: FDA-Public Use
  Company Number: US-BIOGENIDEC-2009BI008936

PATIENT
  Age: 35 Year
  Sex: Female
  Weight: 55 kg

DRUGS (3)
  1. TYSABRI [Suspect]
     Indication: MULTIPLE SCLEROSIS
     Route: 042
     Dates: start: 20090127, end: 20090401
  2. IMMUPLEX VITAMINS [Concomitant]
     Dates: start: 20090316
  3. MIN-TRAN VITAMINS [Concomitant]
     Dates: start: 20090316

REACTIONS (2)
  - PAIN [None]
  - SUPRAVENTRICULAR TACHYCARDIA [None]
